FAERS Safety Report 13168013 (Version 2)
Quarter: 2017Q1

REPORT INFORMATION
  Report Type: Spontaneous
  Country: US (occurrence: US)
  Receive Date: 20170131
  Receipt Date: 20170302
  Transmission Date: 20170428
  Serious: Yes (Other)
  Sender: FDA-Public Use
  Company Number: US-ELI_LILLY_AND_COMPANY-US201701009177

PATIENT
  Sex: Male

DRUGS (2)
  1. HUMALOG [Suspect]
     Active Substance: INSULIN LISPRO
     Dosage: UP TO 200 U, QD
     Route: 058
     Dates: start: 1997
  2. HUMALOG [Suspect]
     Active Substance: INSULIN LISPRO
     Indication: TYPE 1 DIABETES MELLITUS
     Dosage: UP TO 200 U, QD
     Route: 058
     Dates: start: 1997

REACTIONS (19)
  - Dysphonia [Unknown]
  - Chronic obstructive pulmonary disease [Unknown]
  - Eye infection bacterial [Unknown]
  - Insomnia [Unknown]
  - Dyspnoea [Unknown]
  - Blood glucose increased [Unknown]
  - Diabetic ketoacidosis [Unknown]
  - Renal failure [Unknown]
  - Productive cough [Unknown]
  - Pneumonia aspiration [Unknown]
  - Bacterial infection [Unknown]
  - Blood glucose decreased [Unknown]
  - Tracheomalacia [Unknown]
  - Back injury [Unknown]
  - Hypoglycaemia unawareness [Unknown]
  - Bronchitis [Unknown]
  - Staphylococcal infection [Unknown]
  - Impaired gastric emptying [Unknown]
  - Drug effect decreased [Unknown]

NARRATIVE: CASE EVENT DATE: 2005
